FAERS Safety Report 9606254 (Version 1)
Quarter: 2013Q4

REPORT INFORMATION
  Report Type: Spontaneous
  Country: US (occurrence: US)
  Receive Date: 20131008
  Receipt Date: 20131008
  Transmission Date: 20140711
  Serious: No
  Sender: FDA-Public Use
  Company Number: US-AMGEN-USASP2013046599

PATIENT
  Age: 54 Year
  Sex: Female

DRUGS (4)
  1. PROLIA [Suspect]
     Indication: OSTEOPOROSIS POSTMENOPAUSAL
     Dosage: UNK
     Dates: start: 201104
  2. OMEPRAZOLE [Concomitant]
     Dosage: UNK
  3. HERBAL EXTRACT NOS [Concomitant]
     Dosage: UNK
  4. CINNAMON                           /01647501/ [Concomitant]
     Dosage: UNK

REACTIONS (13)
  - Cardiac disorder [Unknown]
  - Lung disorder [Unknown]
  - Influenza [Unknown]
  - Dyspnoea [Not Recovered/Not Resolved]
  - Dry mouth [Unknown]
  - Blood pressure abnormal [Unknown]
  - Nasal ulcer [Unknown]
  - Impaired healing [Unknown]
  - Ulcer [Recovering/Resolving]
  - Hair disorder [Unknown]
  - Feeling abnormal [Unknown]
  - Myalgia [Unknown]
  - Abdominal pain upper [Recovering/Resolving]
